FAERS Safety Report 6238981-6 (Version None)
Quarter: 2009Q2

REPORT INFORMATION
  Report Type: 
  Country: None (occurrence: None)
  Receive Date: 20090622
  Receipt Date: 20090616
  Transmission Date: 20091009
  Serious: Yes (Other)
  Sender: FDA-Public Use
  Company Number: A0791789A

PATIENT
  Age: 32 Year
  Sex: Female

DRUGS (2)
  1. VERAMYST [Suspect]
     Indication: DRUG USE FOR UNKNOWN INDICATION
     Dates: start: 20090101
  2. NO CONCURRENT MEDICATION [Concomitant]

REACTIONS (1)
  - ANOSMIA [None]
